FAERS Safety Report 16066679 (Version 1)
Quarter: 2019Q1

REPORT INFORMATION
  Report Type: Spontaneous
  Country: CH (occurrence: CH)
  Receive Date: 20190313
  Receipt Date: 20190313
  Transmission Date: 20190418
  Serious: Yes (Life-Threatening, Hospitalization, Other)
  Sender: FDA-Public Use
  Company Number: CH-ELI_LILLY_AND_COMPANY-CH201903000304

PATIENT
  Age: 38 Year
  Sex: Female
  Weight: 58.2 kg

DRUGS (7)
  1. LORAZEPAM. [Concomitant]
     Active Substance: LORAZEPAM
     Indication: PRODUCT USED FOR UNKNOWN INDICATION
     Dosage: 3 MG, AT NIGHT
     Route: 065
  2. ZYPREXA [Suspect]
     Active Substance: OLANZAPINE
     Indication: PRODUCT USED FOR UNKNOWN INDICATION
     Dosage: 10 MG, IN THE MORNING
     Route: 065
  3. ZYPREXA [Suspect]
     Active Substance: OLANZAPINE
     Dosage: 700 MG, UNK
     Route: 048
     Dates: start: 20190206, end: 20190206
  4. ZYPREXA [Suspect]
     Active Substance: OLANZAPINE
     Dosage: 5 MG, DAILY
  5. ZOLDORM [Concomitant]
     Active Substance: ZOLPIDEM TARTRATE
     Indication: PRODUCT USED FOR UNKNOWN INDICATION
     Dosage: 30 MG, AT NIGHT
  6. LORAZEPAM. [Concomitant]
     Active Substance: LORAZEPAM
     Dosage: 1 MG, QID
     Route: 065
  7. ZYPREXA [Suspect]
     Active Substance: OLANZAPINE
     Dosage: 10 MG, DAILY
     Dates: start: 20190222

REACTIONS (11)
  - Brain injury [Unknown]
  - Intentional overdose [Recovering/Resolving]
  - Anaesthetic complication [Unknown]
  - Oropharyngeal pain [Unknown]
  - Suicide attempt [Unknown]
  - Coma [Recovered/Resolved]
  - Staphylococcal infection [Unknown]
  - Disorientation [Unknown]
  - Haemophilus infection [Unknown]
  - Oxygen saturation decreased [Unknown]
  - Disturbance in attention [Not Recovered/Not Resolved]

NARRATIVE: CASE EVENT DATE: 20190206
